FAERS Safety Report 7944290 (Version 2)
Quarter: 2013Q2

REPORT INFORMATION
  Report Type: Report from Study
  Country: FR (occurrence: FR)
  Receive Date: 20110513
  Receipt Date: 20130508
  Transmission Date: 20140414
  Serious: No
  Sender: FDA-Public Use
  Company Number: PHHY2011FR40064

PATIENT
  Sex: 0

DRUGS (1)
  1. STI571 [Suspect]
     Indication: CHRONIC MYELOID LEUKAEMIA
     Dosage: UNK UKN, UNK

REACTIONS (1)
  - Anxiety [Unknown]
